FAERS Safety Report 7251746-1 (Version None)
Quarter: 2011Q1

REPORT INFORMATION
  Report Type: 
  Country: None (occurrence: None)
  Receive Date: 20110128
  Receipt Date: 20110118
  Transmission Date: 20110831
  Serious: Yes (Other)
  Sender: FDA-Public Use
  Company Number: US-ELI_LILLY_AND_COMPANY-US201011002556

PATIENT
  Sex: Male
  Weight: 86.168 kg

DRUGS (5)
  1. CHANTIX [Concomitant]
     Indication: SMOKING CESSATION THERAPY
     Dosage: 0.5 MG, DAILY (1/D)
     Route: 048
     Dates: start: 20090907
  2. PROZAC [Suspect]
     Indication: DEPRESSION
     Dosage: 20 MG, DAILY (1/D)
     Dates: start: 20090812
  3. AMBIEN [Concomitant]
  4. CHANTIX [Concomitant]
     Dosage: 1 MG, 2/D
     Route: 048
     Dates: start: 20090701, end: 20090901
  5. PROZAC [Suspect]
     Dosage: 40 MG, DAILY (1/D)
     Dates: end: 20100501

REACTIONS (2)
  - WEIGHT DECREASED [None]
  - DRUG INEFFECTIVE [None]
